FAERS Safety Report 6028522-0 (Version None)
Quarter: 2008Q4

REPORT INFORMATION
  Report Type: 
  Country: None (occurrence: None)
  Receive Date: 20081231
  Receipt Date: 20081231
  Transmission Date: 20090506
  Serious: Yes (Hospitalization)
  Sender: FDA-Public Use
  Company Number: None

PATIENT
  Age: 60 Year
  Sex: Male
  Weight: 102.1 kg

DRUGS (1)
  1. CARBAMAZEPINE [Suspect]
     Indication: CONVULSION PROPHYLAXIS
     Dosage: 200 MG TID PO
     Route: 048
     Dates: start: 20081224, end: 20081226

REACTIONS (1)
  - STEVENS-JOHNSON SYNDROME [None]
